FAERS Safety Report 7171298-4 (Version None)
Quarter: 2010Q4

REPORT INFORMATION
  Report Type: 
  Country: None (occurrence: None)
  Receive Date: 20101217
  Receipt Date: 20101215
  Transmission Date: 20110411
  Serious: Yes (Death)
  Sender: FDA-Public Use
  Company Number: GB-ABBOTT-10P-167-0691433-00

PATIENT
  Sex: Male
  Weight: 56 kg

DRUGS (1)
  1. HUMIRA [Suspect]
     Indication: RHEUMATOID ARTHRITIS
     Route: 058
     Dates: start: 20030110

REACTIONS (7)
  - CARDIAC FAILURE CONGESTIVE [None]
  - HYPERTENSION [None]
  - INGUINAL HERNIA, OBSTRUCTIVE [None]
  - INTESTINAL OBSTRUCTION [None]
  - MYOCARDIAL ISCHAEMIA [None]
  - RENAL FAILURE CHRONIC [None]
  - RHEUMATOID ARTHRITIS [None]
